FAERS Safety Report 22063830 (Version 1)
Quarter: 2023Q1

REPORT INFORMATION
  Report Type: Spontaneous
  Country: NL (occurrence: NL)
  Receive Date: 20230306
  Receipt Date: 20230306
  Transmission Date: 20230417
  Serious: Yes (Hospitalization, Other)
  Sender: FDA-Public Use
  Company Number: NL-SA-2023SA048205

PATIENT
  Age: 71 Year
  Sex: Female

DRUGS (4)
  1. VALPROATE SODIUM [Suspect]
     Active Substance: VALPROATE SODIUM
     Indication: Bipolar I disorder
     Dosage: 80?100 MG/L (INCREASED TO HIGH THERAPEUTIC LEVELS)
     Route: 065
  2. VALPROATE SODIUM [Suspect]
     Active Substance: VALPROATE SODIUM
     Dosage: 50?80 MG/L
     Route: 065
  3. LITHIUM [Concomitant]
     Active Substance: LITHIUM
     Indication: Bipolar I disorder
     Dosage: UNK
     Route: 065
  4. OLANZAPINE [Concomitant]
     Active Substance: OLANZAPINE
     Indication: Bipolar I disorder
     Dosage: 10 MILLIGRAM
     Route: 065

REACTIONS (17)
  - Toxic encephalopathy [Recovered/Resolved]
  - Akathisia [Recovered/Resolved]
  - Staring [Recovered/Resolved]
  - Bradyphrenia [Recovered/Resolved]
  - Mutism [Recovered/Resolved]
  - Disturbance in attention [Recovered/Resolved]
  - Muscle rigidity [Recovered/Resolved]
  - Cogwheel rigidity [Recovered/Resolved]
  - Fatigue [Recovered/Resolved]
  - Hypotonia [Recovered/Resolved]
  - Disorientation [Recovered/Resolved]
  - Movement disorder [Recovered/Resolved]
  - Resting tremor [Recovered/Resolved]
  - Depressed level of consciousness [Recovered/Resolved]
  - Memory impairment [Recovered/Resolved]
  - Posture abnormal [Recovered/Resolved]
  - Parkinsonism [Recovered/Resolved]
